FAERS Safety Report 10296597 (Version 1)
Quarter: 2014Q3

REPORT INFORMATION
  Report Type: Spontaneous
  Country: JP (occurrence: JP)
  Receive Date: 20140710
  Receipt Date: 20140710
  Transmission Date: 20150326
  Serious: Yes (Hospitalization)
  Sender: FDA-Public Use
  Company Number: PHHY2009JP071911

PATIENT
  Age: 84 Year
  Sex: Male

DRUGS (2)
  1. GLIVEC [Suspect]
     Active Substance: IMATINIB MESYLATE
     Indication: CHRONIC MYELOID LEUKAEMIA
     Dosage: 400 MG, DAILY
     Dates: start: 20040928
  2. ADALAT [Concomitant]
     Active Substance: NIFEDIPINE

REACTIONS (1)
  - Jaundice cholestatic [Unknown]

NARRATIVE: CASE EVENT DATE: 20090812
